FAERS Safety Report 21553933 (Version 1)
Quarter: 2022Q4

REPORT INFORMATION
  Report Type: Spontaneous
  Country: US (occurrence: US)
  Receive Date: 20221104
  Receipt Date: 20221104
  Transmission Date: 20230113
  Serious: No
  Sender: FDA-Public Use
  Company Number: US-Accord-265889

PATIENT
  Age: 58 Year
  Sex: Male
  Weight: 115.67 kg

DRUGS (21)
  1. GLIPIZIDE [Suspect]
     Active Substance: GLIPIZIDE
     Indication: Product used for unknown indication
     Dates: end: 20220331
  2. MIFEPRISTONE [Suspect]
     Active Substance: MIFEPRISTONE
     Indication: Cushing^s syndrome
     Dosage: QD
     Route: 048
     Dates: start: 20220404, end: 20220417
  3. ACTOS [Suspect]
     Active Substance: PIOGLITAZONE HYDROCHLORIDE
     Indication: Product used for unknown indication
  4. ALBUTEROL SULFATE [Concomitant]
     Active Substance: ALBUTEROL SULFATE
  5. FAMOTIDINE [Concomitant]
     Active Substance: FAMOTIDINE
  6. FINASTERIDE [Concomitant]
     Active Substance: FINASTERIDE
  7. HYDROCODONE [Concomitant]
     Active Substance: HYDROCODONE
  8. ICOSAPENT [Concomitant]
     Active Substance: ICOSAPENT
  9. EMPAGLIFLOZIN [Concomitant]
     Active Substance: EMPAGLIFLOZIN
  10. LINACLOTIDE [Concomitant]
     Active Substance: LINACLOTIDE
  11. METFORMIN [Concomitant]
     Active Substance: METFORMIN HYDROCHLORIDE
  12. PRUCALOPRIDE [Concomitant]
     Active Substance: PRUCALOPRIDE
  13. SEMAGLUTIDE [Concomitant]
     Active Substance: SEMAGLUTIDE
  14. RESTASIS [Concomitant]
     Active Substance: CYCLOSPORINE
  15. ROSUVASTATIN [Concomitant]
     Active Substance: ROSUVASTATIN
  16. TIZANIDINE [Concomitant]
     Active Substance: TIZANIDINE
  17. TRAZODONE [Concomitant]
     Active Substance: TRAZODONE HYDROCHLORIDE
     Dates: start: 20220331
  18. INSULIN DEGLUDEC [Concomitant]
     Active Substance: INSULIN DEGLUDEC
  19. VITAMIN D2 [Concomitant]
     Active Substance: ERGOCALCIFEROL
  20. PIOGLITAZONE [Concomitant]
     Active Substance: PIOGLITAZONE
  21. MIFEPRISTONE [Suspect]
     Active Substance: MIFEPRISTONE
     Indication: Cushing^s syndrome
     Dosage: QD
     Route: 048
     Dates: start: 20220418

REACTIONS (8)
  - Headache [Recovered/Resolved]
  - Feeling jittery [Not Recovered/Not Resolved]
  - Dizziness [Recovering/Resolving]
  - Nausea [Recovering/Resolving]
  - Somnolence [Unknown]
  - Constipation [Not Recovered/Not Resolved]
  - Peripheral swelling [Recovering/Resolving]
  - Weight increased [Recovering/Resolving]

NARRATIVE: CASE EVENT DATE: 20220404
